FAERS Safety Report 25726232 (Version 1)
Quarter: 2025Q3

REPORT INFORMATION
  Report Type: Spontaneous
  Country: US (occurrence: US)
  Receive Date: 20250826
  Receipt Date: 20250826
  Transmission Date: 20251020
  Serious: No
  Sender: SANOFI AVENTIS
  Company Number: US-SA-2025SA253655

PATIENT
  Age: 28 Year
  Sex: Female

DRUGS (11)
  1. DUPIXENT [Suspect]
     Active Substance: DUPILUMAB
     Indication: Dermatitis atopic
     Dosage: 300 MG, QOW
     Route: 058
     Dates: start: 20210904
  2. ALBUTEROL SULFATE [Concomitant]
     Active Substance: ALBUTEROL SULFATE
  3. BACLOFEN [Concomitant]
     Active Substance: BACLOFEN
  4. LYRICA [Concomitant]
     Active Substance: PREGABALIN
  5. CAPLYTA [Concomitant]
     Active Substance: LUMATEPERONE
  6. CLONIDINE [Concomitant]
     Active Substance: CLONIDINE
  7. HYDROCORT [HYDROCORTISONE] [Concomitant]
  8. LEVOCARNITINA [LEVOCARNITINE] [Concomitant]
  9. VITAMINS NOS [Concomitant]
     Active Substance: VITAMINS
  10. PREGABALIN [Concomitant]
     Active Substance: PREGABALIN
  11. SERTRALINE [Concomitant]
     Active Substance: SERTRALINE HYDROCHLORIDE

REACTIONS (4)
  - Dermatitis atopic [Unknown]
  - Rash [Unknown]
  - Skin discomfort [Unknown]
  - Expired product administered [Unknown]

NARRATIVE: CASE EVENT DATE: 20250701
